FAERS Safety Report 12774061 (Version 1)
Quarter: 2016Q3

REPORT INFORMATION
  Report Type: Report from Study
  Country: US (occurrence: US)
  Receive Date: 20160923
  Receipt Date: 20160923
  Transmission Date: 20161109
  Serious: Yes (Hospitalization)
  Sender: FDA-Public Use
  Company Number: US-AMGEN-USASL2016126367

PATIENT
  Age: 48 Year
  Sex: Male

DRUGS (1)
  1. ENBREL [Suspect]
     Active Substance: ETANERCEPT
     Indication: PSORIASIS
     Dosage: UNK UNK, QWK
     Route: 065

REACTIONS (9)
  - Injection site haemorrhage [Unknown]
  - Wrong technique in product usage process [Unknown]
  - Pain [Unknown]
  - Injection site discolouration [Unknown]
  - Circumstance or information capable of leading to medication error [Unknown]
  - Cholecystectomy [Recovered/Resolved]
  - Sinusitis [Unknown]
  - Hepatic steatosis [Unknown]
  - Injury [Unknown]
